FAERS Safety Report 8341670 (Version 3)
Quarter: 2012Q4

REPORT INFORMATION
  Report Type: 
  Country: US (occurrence: US)
  Receive Date: 20120118
  Receipt Date: 20121203
  Transmission Date: 20130627
  Serious: Yes (Hospitalization)
  Sender: FDA-Public Use
  Company Number: US-BAYER-2012-004481

PATIENT
  Age: 39 Year
  Sex: Female
  Weight: 104.31 kg

DRUGS (13)
  1. YAZ [Suspect]
     Indication: POLYCYSTIC OVARIAN SYNDROME
     Dosage: UNK
     Dates: start: 200610, end: 201002
  2. YAZ [Suspect]
     Indication: PREMENSTRUAL SYNDROME
  3. YASMIN [Suspect]
     Indication: POLYCYSTIC OVARIAN SYNDROME
     Dosage: UNK
     Dates: start: 200304, end: 200609
  4. YASMIN [Suspect]
     Indication: PREMENSTRUAL SYNDROME
  5. METFORMIN [Concomitant]
     Indication: POLYCYSTIC OVARIAN SYNDROME
     Dosage: 500 mg, QD
     Dates: start: 1998
  6. VITAMIN C [Concomitant]
     Dosage: UNK UNK, PRN
     Dates: start: 2001, end: 2011
  7. IBUPROFEN [Concomitant]
     Dosage: UNK UNK, PRN
     Dates: start: 2001, end: 2011
  8. ASPIRIN [Concomitant]
     Dosage: UNK UNK, PRN
     Dates: start: 2001, end: 2011
  9. ACETAMINOPHEN [Concomitant]
     Dosage: UNK UNK, PRN
     Dates: start: 2001, end: 2011
  10. AVAPRO [Concomitant]
     Indication: BLOOD PRESSURE HIGH
     Dosage: 300 mg, QD
     Dates: start: 200301, end: 201005
  11. LEXAPRO [Concomitant]
     Indication: DEPRESSION
     Dosage: 10 mg, QD
     Dates: start: 2008
  12. TRICOR [Concomitant]
     Indication: LIPIDS NOS HIGH
     Dosage: 145 mg, QD
     Dates: start: 200912, end: 201002
  13. TRICOR [Concomitant]
     Indication: HIGH CHOLESTEROL

REACTIONS (4)
  - Thrombophlebitis superficial [None]
  - Venous thrombosis [None]
  - Injury [None]
  - Off label use [None]
